FAERS Safety Report 14330519 (Version 1)
Quarter: 2017Q4

REPORT INFORMATION
  Report Type: Spontaneous
  Country: ZA (occurrence: ZA)
  Receive Date: 20171227
  Receipt Date: 20171227
  Transmission Date: 20180321
  Serious: Yes (Hospitalization, Other)
  Sender: FDA-Public Use
  Company Number: ZA-MYLANLABS-2017M1079291

PATIENT
  Age: 64 Year
  Sex: Male

DRUGS (15)
  1. CYMGEN [Concomitant]
     Active Substance: DULOXETINE HYDROCHLORIDE
     Indication: DEPRESSION
     Dosage: 30 MG, UNK
     Route: 048
  2. TRAMACET [Concomitant]
     Active Substance: ACETAMINOPHEN\TRAMADOL
     Indication: PAIN
     Dosage: UNK
     Route: 048
  3. DIAPHAGE [Concomitant]
     Active Substance: METFORMIN HYDROCHLORIDE
     Indication: DIABETES MELLITUS
     Dosage: 100 MG, UNK
     Route: 048
  4. SLOW K [Concomitant]
     Active Substance: POTASSIUM CHLORIDE
     Indication: MINERAL SUPPLEMENTATION
     Dosage: 600 MG, UNK
     Route: 048
  5. LANSOLOC [Concomitant]
     Indication: ULCER
     Dosage: 30 MG, UNK
     Route: 048
  6. COXFLAM [Concomitant]
     Active Substance: MELOXICAM
     Indication: INFLAMMATION
     Dosage: 7.5 MG, UNK
     Route: 048
  7. MYLAN FUROSEMIDE 40 [Suspect]
     Active Substance: FUROSEMIDE
     Indication: HYPERTENSION
     Dosage: 40 MG, UNK
     Route: 048
  8. LANTUS [Concomitant]
     Active Substance: INSULIN GLARGINE
     Indication: DIABETES MELLITUS
     Dosage: 100 IU, UNK
     Route: 030
  9. NOVORAPID [Concomitant]
     Active Substance: INSULIN ASPART
     Indication: DIABETES MELLITUS
     Dosage: 100 IU, UNK
     Route: 030
  10. TREPILINE                          /00002201/ [Concomitant]
     Active Substance: AMITRIPTYLINE
     Indication: DEPRESSION
     Dosage: 10 MG, UNK
     Route: 048
  11. CARLOC [Concomitant]
     Active Substance: CARVEDILOL
     Indication: CARDIAC DISORDER
     Dosage: 25 MG, UNK
     Route: 048
  12. BAYER ASPIRIN CARDIO [Concomitant]
     Active Substance: ASPIRIN
     Indication: ANTICOAGULANT THERAPY
     Dosage: 100 MG, UNK
     Route: 048
  13. STORWIN [Concomitant]
     Active Substance: ROSUVASTATIN CALCIUM
     Indication: BLOOD CHOLESTEROL ABNORMAL
     Dosage: 20 MG, UNK
     Route: 048
  14. LYRICA [Concomitant]
     Active Substance: PREGABALIN
     Indication: PAIN
     Dosage: 25 MG, UNK
     Route: 048
  15. TAREG [Concomitant]
     Active Substance: VALSARTAN
     Indication: HYPERTENSION
     Dosage: 80 MG, UNK
     Route: 048

REACTIONS (1)
  - Cardiac failure [Unknown]
